FAERS Safety Report 9307860 (Version 2)
Quarter: 2013Q2

REPORT INFORMATION
  Report Type: Spontaneous
  Country: IT (occurrence: IT)
  Receive Date: 20130524
  Receipt Date: 20130531
  Transmission Date: 20140414
  Serious: Yes (Hospitalization)
  Sender: FDA-Public Use
  Company Number: IT-SANOFI-AVENTIS-2013SA050029

PATIENT
  Age: 52 Year
  Sex: Female

DRUGS (1)
  1. ARAVA [Suspect]
     Indication: RHEUMATOID ARTHRITIS
     Route: 048
     Dates: start: 20130208, end: 20130413

REACTIONS (4)
  - Stevens-Johnson syndrome [Recovering/Resolving]
  - Hepatotoxicity [Recovering/Resolving]
  - Eosinophilia [Recovering/Resolving]
  - Aplastic anaemia [Recovering/Resolving]
